FAERS Safety Report 14596380 (Version 1)
Quarter: 2018Q1

REPORT INFORMATION
  Report Type: Spontaneous
  Country: DE (occurrence: DE)
  Receive Date: 20180303
  Receipt Date: 20180303
  Transmission Date: 20180509
  Serious: Yes (Other)
  Sender: FDA-Public Use
  Company Number: DE-AUROBINDO-AUR-APL-2018-011177

PATIENT
  Age: 28 Year
  Sex: Female

DRUGS (1)
  1. QUETIAPINE. [Suspect]
     Active Substance: QUETIAPINE
     Indication: PSYCHOTIC DISORDER
     Dosage: DAILY DOSE: 600 MG MILLIGRAM(S) EVERY DAY
     Route: 048

REACTIONS (2)
  - Labour complication [Unknown]
  - Exposure during pregnancy [Unknown]
